FAERS Safety Report 9891602 (Version 1)
Quarter: 2014Q1

REPORT INFORMATION
  Report Type: Spontaneous
  Country: US (occurrence: None)
  Receive Date: 20140210
  Receipt Date: 20140210
  Transmission Date: 20141002
  Serious: Yes (Other)
  Sender: FDA-Public Use
  Company Number: 2014P1000789

PATIENT
  Age: 21 Year
  Sex: Male

DRUGS (2)
  1. MYORISAN 40 MG [Suspect]
     Indication: ACNE
     Route: 048
     Dates: start: 20131028, end: 201401
  2. MYORISAN 20 MG (NO PREF. NAME) [Suspect]
     Indication: ACNE
     Route: 048
     Dates: start: 20131220, end: 201401

REACTIONS (3)
  - Depression [None]
  - Anhedonia [None]
  - Mood altered [None]
